FAERS Safety Report 8368087-1 (Version None)
Quarter: 2012Q2

REPORT INFORMATION
  Report Type: 
  Country: None (occurrence: None)
  Receive Date: 20120517
  Receipt Date: 20120514
  Transmission Date: 20120825
  Serious: Yes (Other)
  Sender: FDA-Public Use
  Company Number: AT-PFIZER INC-2012116436

PATIENT
  Age: 45 Year
  Sex: Female

DRUGS (8)
  1. ALPRAZOLAM [Concomitant]
     Dosage: 1.5 MG, 1X/DAY
     Dates: start: 20120309, end: 20120310
  2. LYRICA [Suspect]
     Indication: GENERALISED ANXIETY DISORDER
     Dosage: 200 MG, 1X/DAY
     Dates: start: 20120311, end: 20120312
  3. MIRTAZAPINE [Suspect]
     Dosage: 60 MG
     Dates: start: 20120312, end: 20120416
  4. LYRICA [Suspect]
     Indication: PANIC DISORDER
     Dosage: 100 MG, 1X/DAY
     Dates: start: 20120309, end: 20120310
  5. ALPRAZOLAM [Concomitant]
     Dosage: 1.25 MG, 1X/DAY
     Dates: start: 20120311, end: 20120311
  6. ALPRAZOLAM [Concomitant]
     Dosage: 1 MG, 1X/DAY
     Dates: start: 20120312, end: 20120319
  7. SERTRALINE [Suspect]
     Indication: DEPRESSION
     Dosage: 100 MG, 1X/DAY
     Dates: start: 20120210
  8. MIRTAZAPINE [Suspect]
     Indication: DEPRESSION
     Dosage: 30 MG, 1X/DAY
     Dates: start: 20120210, end: 20120311

REACTIONS (2)
  - EYELID OEDEMA [None]
  - PERIORBITAL OEDEMA [None]
